FAERS Safety Report 15107998 (Version 1)
Quarter: 2018Q3

REPORT INFORMATION
  Report Type: Spontaneous
  Country: ES (occurrence: ES)
  Receive Date: 20180704
  Receipt Date: 20180704
  Transmission Date: 20181010
  Serious: Yes (Other)
  Sender: FDA-Public Use
  Company Number: ES-TEVA-2018-ES-920025

PATIENT
  Age: 2 Decade
  Sex: Female

DRUGS (1)
  1. SEASONIQUE [Suspect]
     Active Substance: ETHINYL ESTRADIOL\LEVONORGESTREL
     Route: 048
     Dates: start: 201712, end: 201805

REACTIONS (4)
  - Vaginal haemorrhage [Unknown]
  - Anaemia [Unknown]
  - Uterine enlargement [Unknown]
  - Uterine haemorrhage [Unknown]
